FAERS Safety Report 20777370 (Version 1)
Quarter: 2022Q2

REPORT INFORMATION
  Report Type: Spontaneous
  Country: US (occurrence: US)
  Receive Date: 20220503
  Receipt Date: 20220503
  Transmission Date: 20220720
  Serious: Yes (Other)
  Sender: FDA-Public Use
  Company Number: US-LUPIN PHARMACEUTICALS INC.-2022-06395

PATIENT
  Age: 61 Year
  Sex: Male

DRUGS (12)
  1. LINEZOLID [Suspect]
     Active Substance: LINEZOLID
     Indication: Device related infection
     Dosage: UNK
     Route: 048
     Dates: start: 201908
  2. LINEZOLID [Suspect]
     Active Substance: LINEZOLID
     Indication: Mycobacterium chelonae infection
  3. AZITHROMYCIN [Suspect]
     Active Substance: AZITHROMYCIN
     Indication: Mycobacterium chelonae infection
     Dosage: UNK
     Route: 048
     Dates: start: 201908
  4. AZITHROMYCIN [Suspect]
     Active Substance: AZITHROMYCIN
     Indication: Device related infection
     Dosage: UNK
     Route: 048
     Dates: start: 202001
  5. CIPROFLOXACIN [Suspect]
     Active Substance: CIPROFLOXACIN
     Indication: Device related infection
     Dosage: UNK
     Route: 048
     Dates: start: 201908, end: 201911
  6. CIPROFLOXACIN [Suspect]
     Active Substance: CIPROFLOXACIN
     Indication: Mycobacterium chelonae infection
  7. CLOFAZIMINE [Suspect]
     Active Substance: CLOFAZIMINE
     Indication: Device related infection
     Dosage: UNK
     Route: 048
     Dates: start: 202002
  8. CLOFAZIMINE [Suspect]
     Active Substance: CLOFAZIMINE
     Indication: Mycobacterium chelonae infection
  9. TIGECYCLINE [Suspect]
     Active Substance: TIGECYCLINE
     Indication: Device related infection
     Dosage: UNK
     Route: 042
     Dates: start: 202001
  10. TIGECYCLINE [Suspect]
     Active Substance: TIGECYCLINE
     Indication: Mycobacterium chelonae infection
  11. TOBRAMYCIN [Concomitant]
     Active Substance: TOBRAMYCIN
     Indication: Mycobacterium chelonae infection
     Dosage: UNK
     Route: 042
     Dates: start: 202001
  12. TOBRAMYCIN [Concomitant]
     Active Substance: TOBRAMYCIN
     Indication: Device related infection

REACTIONS (4)
  - Pancytopenia [Unknown]
  - Diarrhoea [Unknown]
  - Drug ineffective [Unknown]
  - Drug resistance [Unknown]

NARRATIVE: CASE EVENT DATE: 20190101
